FAERS Safety Report 7105118-0 (Version None)
Quarter: 2010Q4

REPORT INFORMATION
  Report Type: 
  Country: None (occurrence: None)
  Receive Date: 20101116
  Receipt Date: 20101102
  Transmission Date: 20110411
  Serious: Yes (Life-Threatening, Hospitalization, Other)
  Sender: FDA-Public Use
  Company Number: US-JNJFOC-20101104462

PATIENT
  Age: 74 Year
  Sex: Female

DRUGS (9)
  1. RISPERIDONE [Suspect]
     Indication: AGGRESSION
     Route: 048
  2. RISPERIDONE [Suspect]
     Route: 048
  3. MEMANTINE [Suspect]
     Indication: ILL-DEFINED DISORDER
     Route: 065
  4. DONEPEZIL HCL [Suspect]
     Indication: ILL-DEFINED DISORDER
     Route: 065
  5. CITALOPRAM HYDROBROMIDE [Suspect]
     Indication: ILL-DEFINED DISORDER
     Route: 065
  6. LEVOTHYROXINE [Suspect]
     Indication: ILL-DEFINED DISORDER
     Route: 065
  7. ATENOLOL [Suspect]
     Indication: ILL-DEFINED DISORDER
     Route: 065
  8. SMX-TMP [Suspect]
     Indication: ILL-DEFINED DISORDER
     Dosage: 2 DOUBLE STRENGTH TABLETS/DAY
     Route: 065
  9. ASPIRIN [Suspect]
     Indication: ILL-DEFINED DISORDER
     Route: 065

REACTIONS (1)
  - SEROTONIN SYNDROME [None]
